FAERS Safety Report 15178114 (Version 1)
Quarter: 2018Q3

REPORT INFORMATION
  Report Type: Spontaneous
  Country: GB (occurrence: GB)
  Receive Date: 20180721
  Receipt Date: 20180721
  Transmission Date: 20181010
  Serious: Yes (Disabling)
  Sender: FDA-Public Use
  Company Number: GB-SUN PHARMACEUTICAL INDUSTRIES LTD-2018R1-178958

PATIENT
  Age: 23 Year
  Sex: Male

DRUGS (3)
  1. VENLAFAXINE [Suspect]
     Active Substance: VENLAFAXINE HYDROCHLORIDE
     Indication: ANXIETY
     Dosage: 75 MG, DAILY
     Route: 048
     Dates: start: 20170130, end: 20170219
  2. OLANZAPINE. [Suspect]
     Active Substance: OLANZAPINE
     Indication: ANXIETY
     Dosage: 5 MG, QD, AT NIGHT
     Route: 048
     Dates: start: 20170131, end: 20170227
  3. OLANZAPINE. [Suspect]
     Active Substance: OLANZAPINE
     Indication: ANXIETY
     Dosage: UNK
     Route: 048
     Dates: start: 201803

REACTIONS (19)
  - Myalgia [Not Recovered/Not Resolved]
  - Condition aggravated [Unknown]
  - Vomiting [Not Recovered/Not Resolved]
  - Restlessness [Not Recovered/Not Resolved]
  - Amnesia [Unknown]
  - Vertigo [Not Recovered/Not Resolved]
  - Orthostatic hypotension [Unknown]
  - Headache [Unknown]
  - Agoraphobia [Not Recovered/Not Resolved]
  - Paranoia [Unknown]
  - Asthenia [Not Recovered/Not Resolved]
  - Cognitive disorder [Unknown]
  - Panic attack [Not Recovered/Not Resolved]
  - Tremor [Not Recovered/Not Resolved]
  - Muscle spasms [Not Recovered/Not Resolved]
  - Tardive dyskinesia [Not Recovered/Not Resolved]
  - Induration [Unknown]
  - Nausea [Not Recovered/Not Resolved]
  - Neutropenia [Not Recovered/Not Resolved]

NARRATIVE: CASE EVENT DATE: 20170202
